FAERS Safety Report 8058481-0 (Version None)
Quarter: 2012Q1

REPORT INFORMATION
  Report Type: 
  Country: None (occurrence: None)
  Receive Date: 20120120
  Receipt Date: 20120112
  Transmission Date: 20120608
  Serious: Yes (Hospitalization, Congenital Anomaly, Other)
  Sender: FDA-Public Use
  Company Number: US-PFIZER INC-2011159565

PATIENT
  Sex: Male
  Weight: 2.5 kg

DRUGS (7)
  1. AMBIEN [Concomitant]
     Indication: SLEEP DISORDER
     Dosage: 5 MG, UNK
     Route: 064
     Dates: start: 20071106
  2. EFFEXOR XR [Suspect]
     Indication: DEPRESSION
     Dosage: 150 MG, 1X/DAY
     Route: 064
  3. ACETAMINOPHEN [Concomitant]
     Indication: MIGRAINE
     Dosage: UNK
     Route: 064
     Dates: start: 20070507
  4. THYROID TAB [Concomitant]
     Indication: HYPOTHYROIDISM
     Dosage: 120 MG, UNK
     Route: 064
  5. ONDANSETRON HCL [Concomitant]
     Indication: MIGRAINE
     Dosage: 8 MG, UNK
     Route: 064
     Dates: start: 20070507
  6. PROMETHAZINE [Concomitant]
     Dosage: 25 MG, UNK
     Route: 064
     Dates: start: 20070518
  7. FIORICET [Concomitant]
     Indication: SLEEP DISORDER
     Dosage: UNK
     Route: 064
     Dates: start: 20071106

REACTIONS (11)
  - HYPOPLASTIC LEFT HEART SYNDROME [None]
  - PULMONARY VEIN STENOSIS [None]
  - MATERNAL EXPOSURE TIMING UNSPECIFIED [None]
  - TRICUSPID VALVE DISEASE [None]
  - ATRIAL SEPTAL DEFECT [None]
  - CARDIOMEGALY [None]
  - RENAL TRANSPLANT [None]
  - CARDIAC FAILURE CONGESTIVE [None]
  - PATENT DUCTUS ARTERIOSUS [None]
  - SHOCK [None]
  - CONGENITAL PULMONARY ARTERY ANOMALY [None]
